FAERS Safety Report 18028505 (Version 1)
Quarter: 2020Q3

REPORT INFORMATION
  Report Type: Spontaneous
  Country: JP (occurrence: JP)
  Receive Date: 20200716
  Receipt Date: 20200716
  Transmission Date: 20201103
  Serious: Yes (Other)
  Sender: FDA-Public Use
  Company Number: JP-SUN PHARMACEUTICAL INDUSTRIES LTD-2020RR-253851

PATIENT
  Age: 38 Year
  Sex: Male

DRUGS (14)
  1. OXALIPLATIN. [Suspect]
     Active Substance: OXALIPLATIN
     Indication: METASTASES TO BONE MARROW
  2. FLUOROURACIL. [Suspect]
     Active Substance: FLUOROURACIL
     Indication: RECTAL CANCER
     Dosage: 8 COURSES
     Route: 065
  3. AFLIBERCEPT [Suspect]
     Active Substance: AFLIBERCEPT
     Indication: RECTAL CANCER
     Route: 065
  4. AFLIBERCEPT [Suspect]
     Active Substance: AFLIBERCEPT
     Indication: METASTASES TO BONE MARROW
  5. IRINOTECAN [Suspect]
     Active Substance: IRINOTECAN
     Indication: RECTAL CANCER
     Dosage: 2 COURSES
     Route: 065
  6. CALCIUM FOLINAT [Suspect]
     Active Substance: LEUCOVORIN CALCIUM
     Indication: RECTAL CANCER
     Dosage: 8 COURSES
     Route: 065
  7. FLUOROURACIL. [Suspect]
     Active Substance: FLUOROURACIL
     Indication: METASTASES TO BONE MARROW
     Dosage: 2 COURSES
     Route: 065
  8. CETUXIMAB. [Suspect]
     Active Substance: CETUXIMAB
     Indication: METASTASES TO BONE MARROW
  9. REGORAFENIB. [Suspect]
     Active Substance: REGORAFENIB
     Indication: RECTAL CANCER
     Dosage: ONE COURSE
     Route: 065
  10. IRINOTECAN [Suspect]
     Active Substance: IRINOTECAN
     Indication: METASTASES TO BONE MARROW
  11. CETUXIMAB. [Suspect]
     Active Substance: CETUXIMAB
     Indication: RECTAL CANCER
     Dosage: UNK
     Route: 065
  12. REGORAFENIB. [Suspect]
     Active Substance: REGORAFENIB
     Indication: METASTASES TO BONE MARROW
  13. OXALIPLATIN. [Suspect]
     Active Substance: OXALIPLATIN
     Indication: RECTAL CANCER
     Dosage: 8 COURSES
     Route: 065
  14. CALCIUM FOLINAT [Suspect]
     Active Substance: LEUCOVORIN CALCIUM
     Indication: METASTASES TO BONE MARROW
     Dosage: 2 COURSES
     Route: 065

REACTIONS (4)
  - Back pain [Recovering/Resolving]
  - Lymphadenopathy [Recovering/Resolving]
  - Drug ineffective [Unknown]
  - Pyrexia [Recovering/Resolving]
